FAERS Safety Report 4714865-7 (Version None)
Quarter: 2005Q3

REPORT INFORMATION
  Report Type: 
  Country: None (occurrence: None)
  Receive Date: 20050712
  Receipt Date: 20050630
  Transmission Date: 20060218
  Serious: Yes (Other)
  Sender: FDA-Public Use
  Company Number: GBWYE794904JUL05

PATIENT
  Age: 32 Year
  Sex: Female

DRUGS (2)
  1. PREMIQUE (CONJUGATED ESTROGENS/MEDROXYPROGESTERONE ACETATE, TABLET, 5 [Suspect]
     Indication: ENDOMETRIOSIS
     Dosage: 0.3 CONJUGATED OESTROGEN/5.0MG
     Dates: start: 20041110, end: 20050201
  2. PROSTAP SR (LEUPRORELIN ACETATE, INJECTION, 0) [Suspect]
     Indication: ENDOMETRIOSIS
     Dosage: 11.25 MG 2X PER 1 MTH
     Dates: start: 20041110, end: 20050308

REACTIONS (2)
  - BONE DENSITY DECREASED [None]
  - HAEMORRHAGE [None]
